FAERS Safety Report 5132778-6 (Version None)
Quarter: 2006Q4

REPORT INFORMATION
  Report Type: 
  Country: None (occurrence: None)
  Receive Date: 20061023
  Receipt Date: 20061013
  Transmission Date: 20070319
  Serious: Yes (Death)
  Sender: FDA-Public Use
  Company Number: JP-BRISTOL-MYERS SQUIBB COMPANY-13548227

PATIENT
  Age: 32 Year
  Sex: Male

DRUGS (4)
  1. ARIPIPRAZOLE [Suspect]
     Indication: SCHIZOPHRENIA
     Route: 048
  2. QUAZEPAM [Concomitant]
     Route: 048
  3. SENNOSIDE [Concomitant]
     Route: 048
  4. OLANZAPINE [Concomitant]
     Route: 048

REACTIONS (1)
  - COMPLETED SUICIDE [None]
